FAERS Safety Report 10178484 (Version 1)
Quarter: 2014Q2

REPORT INFORMATION
  Report Type: Report from Study
  Country: AU (occurrence: None)
  Receive Date: 20140515
  Receipt Date: 20140515
  Transmission Date: 20141212
  Serious: Yes (Other)
  Sender: FDA-Public Use
  Company Number: 2014-19513

PATIENT
  Sex: Female

DRUGS (1)
  1. EYLEA (AFLIBERCEPT) INJECTION)AFLIBERCEPT) [Suspect]
     Indication: AGE-RELATED MACULAR DEGENERATION

REACTIONS (2)
  - Glaucoma [None]
  - Visual impairment [None]
